FAERS Safety Report 12356212 (Version 1)
Quarter: 2016Q2

REPORT INFORMATION
  Report Type: Spontaneous
  Country: US (occurrence: US)
  Receive Date: 20160511
  Receipt Date: 20160511
  Transmission Date: 20160815
  Serious: Yes (Other)
  Sender: FDA-Public Use
  Company Number: US-MDT-ADR-2015-02312

PATIENT
  Age: 45 Year
  Sex: Male

DRUGS (3)
  1. GABLOFEN [Suspect]
     Active Substance: BACLOFEN
     Route: 037
     Dates: end: 20150408
  2. LIORESAL [Suspect]
     Active Substance: BACLOFEN
     Dosage: 998MCG/DAY
     Route: 037
     Dates: end: 20151201
  3. LIORESAL [Suspect]
     Active Substance: BACLOFEN
     Dosage: 500MCG/DAY
     Route: 037
     Dates: start: 20151201

REACTIONS (10)
  - Muscle spasms [Unknown]
  - Erythema [Unknown]
  - Tremor [Unknown]
  - Pruritus [Unknown]
  - Feeling hot [Unknown]
  - Drug withdrawal syndrome [Unknown]
  - Muscle spasticity [Unknown]
  - Impaired healing [Unknown]
  - Therapeutic response decreased [Unknown]
  - Flushing [Unknown]

NARRATIVE: CASE EVENT DATE: 20150702
